FAERS Safety Report 10029342 (Version 1)
Quarter: 2014Q1

REPORT INFORMATION
  Report Type: Report from Study
  Country: BR (occurrence: BR)
  Receive Date: 20140321
  Receipt Date: 20140321
  Transmission Date: 20141002
  Serious: Yes (Hospitalization, Other)
  Sender: FDA-Public Use
  Company Number: PHHY2014BR034583

PATIENT
  Age: 83 Year
  Sex: Female
  Weight: 48 kg

DRUGS (2)
  1. EXELON PATCH [Suspect]
     Indication: MEMORY IMPAIRMENT
     Dosage: 1 DF, DAILY (ONE 9 MG/5 CM2, DAILY)
     Route: 062
     Dates: start: 201309, end: 201312
  2. EBIXA [Suspect]
     Indication: MEMORY IMPAIRMENT
     Dosage: 1 DF, DAILY
     Dates: start: 201312, end: 2014

REACTIONS (11)
  - Abdominal infection [Unknown]
  - Renal disorder [Not Recovered/Not Resolved]
  - Blood pressure decreased [Unknown]
  - Confusional state [Unknown]
  - Dehydration [Unknown]
  - Hypersensitivity [Recovered/Resolved]
  - Application site irritation [Recovered/Resolved]
  - Pruritus [Recovered/Resolved]
  - Malaise [Recovering/Resolving]
  - Nausea [Recovered/Resolved]
  - Dizziness [Recovered/Resolved]
